FAERS Safety Report 12487010 (Version 1)
Quarter: 2016Q2

REPORT INFORMATION
  Report Type: Spontaneous
  Country: US (occurrence: None)
  Receive Date: 20160621
  Receipt Date: 20160621
  Transmission Date: 20160815
  Serious: Yes (Hospitalization)
  Sender: FDA-Public Use
  Company Number: None

PATIENT
  Sex: Female

DRUGS (3)
  1. LEVOFLOXACIN, 750MG [Suspect]
     Active Substance: LEVOFLOXACIN
     Indication: SINUSITIS BACTERIAL
     Route: 048
     Dates: start: 20160613, end: 20160615
  2. MULITPLE [Concomitant]
  3. LEVOFLOXACIN, 750MG [Suspect]
     Active Substance: LEVOFLOXACIN
     Indication: COUGH
     Route: 048
     Dates: start: 20160613, end: 20160615

REACTIONS (1)
  - Loss of consciousness [None]

NARRATIVE: CASE EVENT DATE: 20160615
